FAERS Safety Report 16094567 (Version 2)
Quarter: 2019Q1

REPORT INFORMATION
  Report Type: Spontaneous
  Country: US (occurrence: US)
  Receive Date: 20190320
  Receipt Date: 20190321
  Transmission Date: 20190418
  Serious: No
  Sender: FDA-Public Use
  Company Number: US-PFIZER INC-2019115753

PATIENT
  Age: 61 Year
  Sex: Male

DRUGS (8)
  1. LEVOTHYROXINE SODIUM. [Suspect]
     Active Substance: LEVOTHYROXINE SODIUM
     Dosage: UNK
  2. GABAPENTIN. [Suspect]
     Active Substance: GABAPENTIN
     Dosage: UNK
  3. ACEBUTOLOL [Suspect]
     Active Substance: ACEBUTOLOL
     Dosage: UNK
  4. PROPAFENONE. [Suspect]
     Active Substance: PROPAFENONE
     Dosage: UNK
  5. ATORVASTATIN CALCIUM. [Suspect]
     Active Substance: ATORVASTATIN CALCIUM
     Dosage: UNK
  6. DULOXETINE. [Suspect]
     Active Substance: DULOXETINE
     Dosage: UNK
  7. ELIQUIS [Suspect]
     Active Substance: APIXABAN
     Dosage: UNK
  8. OLMESARTAN [Suspect]
     Active Substance: OLMESARTAN
     Dosage: UNK

REACTIONS (1)
  - Drug hypersensitivity [Unknown]
